FAERS Safety Report 9190605 (Version 1)
Quarter: 2013Q1

REPORT INFORMATION
  Report Type: Spontaneous
  Country: US (occurrence: None)
  Receive Date: 20130322
  Receipt Date: 20130322
  Transmission Date: 20140127
  Serious: Yes (Other)
  Sender: FDA-Public Use
  Company Number: 1303-336

PATIENT
  Age: 73 Year
  Sex: Male
  Weight: 72.58 kg

DRUGS (6)
  1. EYLEA (AFLIBERCEPT) (INJECTION) (AFLIBERCEPT) [Suspect]
     Dosage: 1 IN 8 WK, INTRAVITREAL
     Dates: end: 20121206
  2. ATACAND (CANDESARTAN CILEXETIL) [Concomitant]
  3. LASIX (FUROSEMIDE) [Concomitant]
  4. NADOLOL (NADOLOL) [Concomitant]
  5. BABY ASPIRIN (ACETYLSALICYLIC ACID) [Concomitant]
  6. LISINOPRIL (LISINOPRIL) [Concomitant]

REACTIONS (3)
  - Visual impairment [None]
  - Eye pain [None]
  - Eye pruritus [None]
